FAERS Safety Report 7267521-8 (Version None)
Quarter: 2011Q1

REPORT INFORMATION
  Report Type: 
  Country: None (occurrence: None)
  Receive Date: 20110121
  Receipt Date: 20110111
  Transmission Date: 20110831
  Serious: Yes (Congenital Anomaly)
  Sender: FDA-Public Use
  Company Number: 201101032

PATIENT
  Sex: Male

DRUGS (2)
  1. TESTIM [Suspect]
  2. POLYVISOL (ERGOCALCIFEROL) [Concomitant]

REACTIONS (5)
  - CAESAREAN SECTION [None]
  - HYDRONEPHROSIS [None]
  - PREMATURE BABY [None]
  - PLACENTA PRAEVIA [None]
  - MATERNAL DRUGS AFFECTING FOETUS [None]
